APPROVED DRUG PRODUCT: FEXOFENADINE HYDROCHLORIDE AND PSEUDOEPHEDRINE HYDROCHLORIDE
Active Ingredient: FEXOFENADINE HYDROCHLORIDE; PSEUDOEPHEDRINE HYDROCHLORIDE
Strength: 180MG;240MG
Dosage Form/Route: TABLET, EXTENDED RELEASE;ORAL
Application: A079043 | Product #002
Applicant: DR REDDYS LABORATORIES LTD
Approved: Jun 22, 2011 | RLD: No | RS: No | Type: OTC